FAERS Safety Report 5881289-9 (Version None)
Quarter: 2008Q3

REPORT INFORMATION
  Report Type: 
  Country: None (occurrence: None)
  Receive Date: 20080910
  Receipt Date: 20080825
  Transmission Date: 20090109
  Serious: Yes (Death)
  Sender: FDA-Public Use
  Company Number: 2008S1000294

PATIENT
  Age: 57 Year
  Sex: Male

DRUGS (4)
  1. CUBICIN [Suspect]
     Indication: STAPHYLOCOCCAL BACTERAEMIA
     Dosage: 250 MG; Q48H;
  2. LINEZOLID [Concomitant]
  3. VANCOMYCIN HYDROCHLORIDE [Concomitant]
  4. FUSIDATE SODIUM [Concomitant]

REACTIONS (5)
  - ACUTE RESPIRATORY DISTRESS SYNDROME [None]
  - DRUG INEFFECTIVE [None]
  - OFF LABEL USE [None]
  - SEPTIC SHOCK [None]
  - STAPHYLOCOCCAL BACTERAEMIA [None]
